FAERS Safety Report 15463798 (Version 2)
Quarter: 2019Q4

REPORT INFORMATION
  Report Type: Report from Study
  Country: GB (occurrence: PT)
  Receive Date: 20181004
  Receipt Date: 20191025
  Transmission Date: 20200122
  Serious: Yes (Life-Threatening, Other)
  Sender: FDA-Public Use
  Company Number: PT-ASTELLAS-2018US042636

PATIENT
  Age: 30 Year
  Sex: Male

DRUGS (21)
  1. BUPRENORPHINE. [Suspect]
     Active Substance: BUPRENORPHINE
     Indication: HIV INFECTION
     Dosage: 1 ML OF TRIAMCINOLONE 40MG INJECTED
     Route: 065
  2. OXAZEPAM. [Suspect]
     Active Substance: OXAZEPAM
     Indication: PRODUCT USED FOR UNKNOWN INDICATION
     Dosage: 1 ML OF TRIAMCINOLONE 40MG INJECTED
     Route: 065
  3. AMPHOTERICIN B, LIPOSOME [Suspect]
     Active Substance: AMPHOTERICIN B
     Indication: HEPATITIS C
  4. FLURAZEPAM [Suspect]
     Active Substance: FLURAZEPAM HYDROCHLORIDE
     Indication: HIV INFECTION
  5. FLURAZEPAM [Suspect]
     Active Substance: FLURAZEPAM HYDROCHLORIDE
     Indication: HEPATITIS C
  6. LOPINAVIR + RITONAVIR [Suspect]
     Active Substance: LOPINAVIR\RITONAVIR
     Indication: HIV INFECTION
  7. ALPRAZOLAM. [Suspect]
     Active Substance: ALPRAZOLAM
     Indication: CHRONIC HEPATITIS C
     Dosage: UNK UNK, UNKNOWN FREQ.
     Route: 065
  8. ZIDOVUDINE. [Suspect]
     Active Substance: ZIDOVUDINE
     Indication: CHRONIC HEPATITIS C
     Dosage: UNK, UNKNOWN FREQ.
     Route: 065
  9. BUPRENORPHINE. [Suspect]
     Active Substance: BUPRENORPHINE
     Indication: CHRONIC HEPATITIS C
     Dosage: UNK, UNKNOWN FREQ.
     Route: 065
  10. AMPHOTERICIN B, LIPOSOME [Suspect]
     Active Substance: AMPHOTERICIN B
     Indication: CHRONIC HEPATITIS C
  11. FLURAZEPAM [Suspect]
     Active Substance: FLURAZEPAM HYDROCHLORIDE
     Indication: CHRONIC HEPATITIS C
     Dosage: UNK, UNKNOWN FREQ.
     Route: 065
  12. LOPINAVIR + RITONAVIR [Suspect]
     Active Substance: LOPINAVIR\RITONAVIR
     Indication: CHRONIC HEPATITIS C
     Dosage: 1 ML OF TRIAMCINOLONE 40MG INJECTED
     Route: 065
  13. TRIAMCINOLONE [Suspect]
     Active Substance: TRIAMCINOLONE
     Indication: PRODUCT USED FOR UNKNOWN INDICATION
     Dosage: 1 ML OF TRIAMCINOLONE 40 INJECTED , UNKNOWN FREQ.
     Route: 065
  14. AMPHOTERICIN B, LIPOSOME [Suspect]
     Active Substance: AMPHOTERICIN B
     Indication: HIV INFECTION
     Dosage: UNK, UNKNOWN FREQ.
     Route: 065
  15. TRAMADOL. [Suspect]
     Active Substance: TRAMADOL
     Indication: CHRONIC HEPATITIS C
     Dosage: UNK, UNKNOWN FREQ.
     Route: 065
  16. DIDANOSINE. [Suspect]
     Active Substance: DIDANOSINE
     Indication: CHRONIC HEPATITIS C
     Dosage: UNK, UNKNOWN FREQ.
     Route: 065
  17. ALPRAZOLAM. [Suspect]
     Active Substance: ALPRAZOLAM
     Indication: HIV INFECTION
  18. ZIDOVUDINE. [Suspect]
     Active Substance: ZIDOVUDINE
     Indication: HIV INFECTION
  19. TRAMADOL. [Suspect]
     Active Substance: TRAMADOL
     Indication: HIV INFECTION
  20. TRAMADOL. [Suspect]
     Active Substance: TRAMADOL
     Indication: HEPATITIS C
  21. DIDANOSINE. [Suspect]
     Active Substance: DIDANOSINE
     Indication: HIV INFECTION

REACTIONS (2)
  - Drug-induced liver injury [Unknown]
  - Hepatic fibrosis [Unknown]
